FAERS Safety Report 16430154 (Version 4)
Quarter: 2020Q2

REPORT INFORMATION
  Report Type: Report from Study
  Country: None (occurrence: IL)
  Receive Date: 20190614
  Receipt Date: 20200415
  Transmission Date: 20200713
  Serious: Yes (Hospitalization, Other)
  Sender: FDA-Public Use
  Company Number: IL-ABBVIE-17K-082-1984560-00

PATIENT
  Age: 70 Year
  Sex: Male

DRUGS (6)
  1. DUODOPA [Suspect]
     Active Substance: CARBIDOPA\LEVODOPA
     Dosage: CURRENT MD- 6.5ML, CD- 4.6 ML/ HOUR, ND 3ML, ED 2.2 ML
     Route: 050
  2. DUODOPA [Suspect]
     Active Substance: CARBIDOPA\LEVODOPA
     Dosage: CURRENT MORNING DOSE- 14.5 ML, CURRENT FIXED RATE- 5.3 ML/HOUR, CURRENT EXTRA DOSE- 1.5 ML
     Route: 050
     Dates: start: 2017, end: 2017
  3. DUODOPA [Suspect]
     Active Substance: CARBIDOPA\LEVODOPA
     Dosage: CURRENT MD- 8.0 ML, CURRENT FIXED RATE- 5.2 ML, CURRENT ED- 0.3 ML, CURRENT ND- 2.8 ML.
     Route: 050
     Dates: start: 2017, end: 2017
  4. DUODOPA [Suspect]
     Active Substance: CARBIDOPA\LEVODOPA
     Indication: PARKINSON^S DISEASE
     Dosage: CURRENT MD- 8.5 ML,CURRENT FR- 5.2 ML/ HR,CURRENT ED- 0.5 ML,CURRENT FR NIGHT 2.8 ML/HR
     Route: 050
     Dates: start: 20170319, end: 2017
  5. DUODOPA [Suspect]
     Active Substance: CARBIDOPA\LEVODOPA
     Dosage: CURRENT MD- 8.5 ML, CURRENT FIXED RATE- 5.2 ML, CURRENT ED- 0.3 ML, CURRENT ND- 2.8 ML
     Route: 050
     Dates: start: 2017, end: 2017
  6. DUODOPA [Suspect]
     Active Substance: CARBIDOPA\LEVODOPA
     Dosage: CURRENT MD- 8.5ML, CURRENT FR- 5ML/ HOUR, CURRENT NIGHT- 5ML, CURRENT EXTRA DOSE- 0.5ML.
     Route: 050
     Dates: start: 2017

REACTIONS (21)
  - Pyrexia [Recovered/Resolved]
  - Incorrect route of product administration [Unknown]
  - Medication error [Recovering/Resolving]
  - Device occlusion [Recovered/Resolved]
  - Anuria [Not Recovered/Not Resolved]
  - Cystostomy [Not Recovered/Not Resolved]
  - Urinary tract infection [Not Recovered/Not Resolved]
  - Freezing phenomenon [Not Recovered/Not Resolved]
  - Dyskinesia [Not Recovered/Not Resolved]
  - Constipation [Not Recovered/Not Resolved]
  - On and off phenomenon [Recovered/Resolved]
  - Urinary tract infection [Recovered/Resolved]
  - Infection [Not Recovered/Not Resolved]
  - Musculoskeletal stiffness [Unknown]
  - Abdominal pain [Not Recovered/Not Resolved]
  - Coronavirus infection [Not Recovered/Not Resolved]
  - Pyrexia [Not Recovered/Not Resolved]
  - Flatulence [Not Recovered/Not Resolved]
  - Gait disturbance [Unknown]
  - Intentional product misuse [Unknown]
  - On and off phenomenon [Not Recovered/Not Resolved]

NARRATIVE: CASE EVENT DATE: 2017
